FAERS Safety Report 23405297 (Version 1)
Quarter: 2024Q1

REPORT INFORMATION
  Report Type: Spontaneous
  Country: DE (occurrence: DE)
  Receive Date: 20240116
  Receipt Date: 20240116
  Transmission Date: 20240409
  Serious: Yes (Disabling)
  Sender: FDA-Public Use
  Company Number: DE-MYLANLABS-2024M1003587

PATIENT
  Age: 46 Year
  Sex: Male

DRUGS (1)
  1. VIAGRA [Suspect]
     Active Substance: SILDENAFIL CITRATE
     Indication: Erectile dysfunction
     Dosage: 100 MILLIGRAM, UNK
     Route: 048
     Dates: start: 20221104, end: 20221105

REACTIONS (2)
  - Drug ineffective [Not Recovered/Not Resolved]
  - Erection increased [Recovered/Resolved]

NARRATIVE: CASE EVENT DATE: 20221104
